FAERS Safety Report 18708063 (Version 9)
Quarter: 2021Q4

REPORT INFORMATION
  Report Type: Report from Study
  Country: US (occurrence: US)
  Receive Date: 20210106
  Receipt Date: 20211228
  Transmission Date: 20220303
  Serious: Yes (Hospitalization, Other)
  Sender: FDA-Public Use
  Company Number: US-TAKEDA-US201927290

PATIENT
  Age: 58 Year
  Sex: Male

DRUGS (28)
  1. TEDUGLUTIDE [Suspect]
     Active Substance: TEDUGLUTIDE
     Indication: Short-bowel syndrome
     Dosage: 4.127 MILLIGRAM
     Route: 058
     Dates: start: 20190509
  2. TEDUGLUTIDE [Suspect]
     Active Substance: TEDUGLUTIDE
     Indication: Short-bowel syndrome
     Dosage: 4.127 MILLIGRAM
     Route: 058
     Dates: start: 20190509
  3. TEDUGLUTIDE [Suspect]
     Active Substance: TEDUGLUTIDE
     Indication: Short-bowel syndrome
     Dosage: 4.127 MILLIGRAM
     Route: 058
     Dates: start: 20190509
  4. TEDUGLUTIDE [Suspect]
     Active Substance: TEDUGLUTIDE
     Indication: Short-bowel syndrome
     Dosage: 4.127 MILLIGRAM
     Route: 058
     Dates: start: 20190509
  5. TEDUGLUTIDE [Suspect]
     Active Substance: TEDUGLUTIDE
     Dosage: 0.39 MILLILITER, QD
     Route: 058
     Dates: start: 20190620
  6. TEDUGLUTIDE [Suspect]
     Active Substance: TEDUGLUTIDE
     Dosage: 0.39 MILLILITER, QD
     Route: 058
     Dates: start: 20190620
  7. TEDUGLUTIDE [Suspect]
     Active Substance: TEDUGLUTIDE
     Dosage: 0.39 MILLILITER, QD
     Route: 058
     Dates: start: 20190620
  8. TEDUGLUTIDE [Suspect]
     Active Substance: TEDUGLUTIDE
     Dosage: 0.39 MILLILITER, QD
     Route: 058
     Dates: start: 20190620
  9. TEDUGLUTIDE [Suspect]
     Active Substance: TEDUGLUTIDE
     Dosage: 4.127 MILLIGRAM, QD
     Route: 058
     Dates: start: 201906
  10. TEDUGLUTIDE [Suspect]
     Active Substance: TEDUGLUTIDE
     Dosage: 4.127 MILLIGRAM, QD
     Route: 058
     Dates: start: 201906
  11. TEDUGLUTIDE [Suspect]
     Active Substance: TEDUGLUTIDE
     Dosage: 4.127 MILLIGRAM, QD
     Route: 058
     Dates: start: 201906
  12. TEDUGLUTIDE [Suspect]
     Active Substance: TEDUGLUTIDE
     Dosage: 4.127 MILLIGRAM, QD
     Route: 058
     Dates: start: 201906
  13. TEDUGLUTIDE [Suspect]
     Active Substance: TEDUGLUTIDE
     Dosage: 4.127 MILLIGRAM, QD
     Route: 058
     Dates: start: 20190620
  14. TEDUGLUTIDE [Suspect]
     Active Substance: TEDUGLUTIDE
     Dosage: 4.127 MILLIGRAM, QD
     Route: 058
     Dates: start: 20190620
  15. TEDUGLUTIDE [Suspect]
     Active Substance: TEDUGLUTIDE
     Dosage: 4.127 MILLIGRAM, QD
     Route: 058
     Dates: start: 20190620
  16. TEDUGLUTIDE [Suspect]
     Active Substance: TEDUGLUTIDE
     Dosage: 4.127 MILLIGRAM, QD
     Route: 058
     Dates: start: 20190620
  17. TEDUGLUTIDE [Suspect]
     Active Substance: TEDUGLUTIDE
     Dosage: 4.127 MILLIGRAM, QD
     Route: 058
  18. TEDUGLUTIDE [Suspect]
     Active Substance: TEDUGLUTIDE
     Dosage: 4.127 MILLIGRAM, QD
     Route: 058
  19. TEDUGLUTIDE [Suspect]
     Active Substance: TEDUGLUTIDE
     Dosage: 4.127 MILLIGRAM, QD
     Route: 058
  20. TEDUGLUTIDE [Suspect]
     Active Substance: TEDUGLUTIDE
     Dosage: 4.127 MILLIGRAM, QD
     Route: 058
  21. TEDUGLUTIDE [Suspect]
     Active Substance: TEDUGLUTIDE
     Dosage: 4.127 MILLIGRAM, QD
     Route: 058
     Dates: start: 20190621
  22. TEDUGLUTIDE [Suspect]
     Active Substance: TEDUGLUTIDE
     Dosage: 4.127 MILLIGRAM, QD
     Route: 058
     Dates: start: 20190621
  23. TEDUGLUTIDE [Suspect]
     Active Substance: TEDUGLUTIDE
     Dosage: 4.127 MILLIGRAM, QD
     Route: 058
     Dates: start: 20190621
  24. TEDUGLUTIDE [Suspect]
     Active Substance: TEDUGLUTIDE
     Dosage: 4.127 MILLIGRAM, QD
     Route: 058
     Dates: start: 20190621
  25. TEDUGLUTIDE [Suspect]
     Active Substance: TEDUGLUTIDE
     Dosage: 4.127 MILLIGRAM
     Route: 058
     Dates: start: 20201204
  26. TEDUGLUTIDE [Suspect]
     Active Substance: TEDUGLUTIDE
     Dosage: 4.127 MILLIGRAM
     Route: 058
     Dates: start: 20201204
  27. TEDUGLUTIDE [Suspect]
     Active Substance: TEDUGLUTIDE
     Dosage: 4.127 MILLIGRAM
     Route: 058
     Dates: start: 20201204
  28. TEDUGLUTIDE [Suspect]
     Active Substance: TEDUGLUTIDE
     Dosage: 4.127 MILLIGRAM
     Route: 058
     Dates: start: 20201204

REACTIONS (21)
  - Device related sepsis [Unknown]
  - Stoma site haemorrhage [Unknown]
  - Stoma complication [Unknown]
  - Hernia [Unknown]
  - Injection site discomfort [Unknown]
  - Drug ineffective [Unknown]
  - Muscle spasms [Unknown]
  - Gait disturbance [Unknown]
  - Fatigue [Unknown]
  - Sleep disorder [Unknown]
  - Injection site erythema [Unknown]
  - Injection site swelling [Unknown]
  - Injection site pain [Unknown]
  - Abdominal distension [Unknown]
  - Gastrointestinal stoma complication [Unknown]
  - Abdominal pain [Unknown]
  - Weight decreased [Unknown]
  - Gastrointestinal stoma output increased [Unknown]
  - Inappropriate schedule of product administration [Unknown]
  - Therapy interrupted [Unknown]
  - Product dose omission issue [Unknown]

NARRATIVE: CASE EVENT DATE: 20190801
